FAERS Safety Report 12141233 (Version 2)
Quarter: 2016Q1

REPORT INFORMATION
  Report Type: Report from Study
  Country: US (occurrence: US)
  Receive Date: 20160303
  Receipt Date: 20160314
  Transmission Date: 20160526
  Serious: Yes (Other)
  Sender: FDA-Public Use
  Company Number: US-PFIZER INC-2016109083

PATIENT
  Age: 82 Year
  Sex: Male
  Weight: 78 kg

DRUGS (8)
  1. ASACOL HD [Concomitant]
     Active Substance: MESALAMINE
     Indication: INFLAMMATORY BOWEL DISEASE
     Dosage: 2400 MG, BID
     Route: 048
     Dates: start: 20121001
  2. CA CITRATE [Concomitant]
     Indication: OSTEOPENIA
     Dosage: 1000 MG, QD
     Route: 048
     Dates: start: 20121001
  3. TOFACITINIB CITRATE [Suspect]
     Active Substance: TOFACITINIB CITRATE
     Indication: COLITIS ULCERATIVE
     Dosage: 20 MG, DAILY
     Route: 048
     Dates: start: 20140514, end: 20160219
  4. VITAMIN D [Concomitant]
     Active Substance: CHOLECALCIFEROL
     Indication: SUPPLEMENTATION THERAPY
     Dosage: 500 IU, BID
     Route: 048
     Dates: start: 20121001
  5. VITAMIN C [Concomitant]
     Active Substance: ASCORBIC ACID
     Indication: SUPPLEMENTATION THERAPY
     Dosage: 1000 MG, QD
     Route: 048
     Dates: start: 20121001
  6. COUMADIN [Concomitant]
     Active Substance: WARFARIN SODIUM
     Indication: ATRIAL FIBRILLATION
     Dosage: 5 MG, QD
     Route: 048
     Dates: start: 19960601
  7. IRON [Concomitant]
     Active Substance: IRON
     Indication: SUPPLEMENTATION THERAPY
     Dosage: 65 MG, QD
     Route: 048
     Dates: start: 20121001
  8. MULTIVITAMINS [Concomitant]
     Active Substance: VITAMINS
     Indication: SUPPLEMENTATION THERAPY
     Dosage: 1 DF, 1X/DAY
     Route: 048
     Dates: start: 20121001

REACTIONS (1)
  - Leiomyosarcoma [Recovered/Resolved]

NARRATIVE: CASE EVENT DATE: 20151120
